FAERS Safety Report 19865353 (Version 2)
Quarter: 2022Q1

REPORT INFORMATION
  Report Type: Spontaneous
  Country: ES (occurrence: ES)
  Receive Date: 20210922
  Receipt Date: 20220218
  Transmission Date: 20220423
  Serious: Yes (Other)
  Sender: FDA-Public Use
  Company Number: ES-MERCK HEALTHCARE KGAA-9262879

PATIENT
  Age: 87 Year
  Sex: Male
  Weight: 72 kg

DRUGS (10)
  1. METFORMIN [Suspect]
     Active Substance: METFORMIN HYDROCHLORIDE
     Indication: Diabetes mellitus
     Route: 048
     Dates: start: 20160118, end: 20210811
  2. DOXAZOSIN MESYLATE [Suspect]
     Active Substance: DOXAZOSIN MESYLATE
     Indication: Hypertension
     Route: 048
     Dates: start: 2002, end: 20210811
  3. BCG VACCINE [Suspect]
     Active Substance: BCG VACCINE
     Indication: Bladder cancer
     Dosage: 50 MG/50 ML PER ARM B
     Route: 043
     Dates: start: 20210623, end: 20210729
  4. HYDROCHLOROTHIAZIDE\TELMISARTAN [Suspect]
     Active Substance: HYDROCHLOROTHIAZIDE\TELMISARTAN
     Indication: Hypertension
     Dosage: HYDROCHLOROTHIAZIDE 25MG/ TELMISARTAN 80 MG
     Route: 048
     Dates: start: 2002, end: 20210811
  5. FERROUS SULFATE [Concomitant]
     Active Substance: FERROUS SULFATE
     Indication: Anaemia
     Route: 065
     Dates: start: 202103
  6. OMEPRAZOLE [Concomitant]
     Active Substance: OMEPRAZOLE
     Indication: Prophylaxis
     Route: 065
     Dates: start: 202008
  7. PREDNISONE [Concomitant]
     Active Substance: PREDNISONE
     Indication: Nephropathy toxic
     Dates: start: 20210909
  8. BISOPROLOL [Concomitant]
     Active Substance: BISOPROLOL
     Indication: Hypertension
     Route: 048
     Dates: start: 20210817
  9. INSULIN LISPRO [Concomitant]
     Active Substance: INSULIN LISPRO
     Indication: Diabetes mellitus
     Dosage: 100 UNIT/ML, 3 ML
     Route: 058
     Dates: start: 20210817
  10. SASANLIMAB [Concomitant]
     Active Substance: SASANLIMAB
     Indication: Tubulointerstitial nephritis
     Route: 065

REACTIONS (1)
  - Acute kidney injury [Recovered/Resolved]

NARRATIVE: CASE EVENT DATE: 20210811
